FAERS Safety Report 10189059 (Version 3)
Quarter: 2014Q2

REPORT INFORMATION
  Report Type: Spontaneous
  Country: US (occurrence: US)
  Receive Date: 20140522
  Receipt Date: 20140522
  Transmission Date: 20141212
  Serious: No
  Sender: FDA-Public Use
  Company Number: US-ASTRAZENECA-2011SE73106

PATIENT
  Age: 57 Year
  Sex: Male
  Weight: 90.7 kg

DRUGS (6)
  1. PULMICORT FLEXHALER [Suspect]
     Indication: BRONCHIAL DISORDER
     Route: 055
  2. PULMICORT FLEXHALER [Suspect]
     Indication: ASTHMA
     Route: 055
  3. PULMICORT FLEXHALER [Suspect]
     Indication: BRONCHIAL DISORDER
     Route: 055
     Dates: start: 20131101
  4. PULMICORT FLEXHALER [Suspect]
     Indication: ASTHMA
     Route: 055
     Dates: start: 20131101
  5. SYMBICORT [Suspect]
     Indication: BRONCHIAL DISORDER
     Dosage: 160/4.5, ONE PUFF BID
     Route: 055
  6. SYMBICORT [Suspect]
     Indication: ASTHMA
     Dosage: 160/4.5, ONE PUFF BID
     Route: 055

REACTIONS (13)
  - Lung disorder [Recovered/Resolved]
  - Productive cough [Not Recovered/Not Resolved]
  - Wheezing [Not Recovered/Not Resolved]
  - Adverse event [Not Recovered/Not Resolved]
  - General symptom [Not Recovered/Not Resolved]
  - Respiratory tract congestion [Not Recovered/Not Resolved]
  - Cough [Unknown]
  - Increased bronchial secretion [Recovered/Resolved]
  - Drug dose omission [Unknown]
  - Circumstance or information capable of leading to medication error [Unknown]
  - Intentional product misuse [Unknown]
  - Off label use [Unknown]
  - Off label use [Unknown]
